FAERS Safety Report 24294064 (Version 1)
Quarter: 2024Q3

REPORT INFORMATION
  Report Type: Spontaneous
  Country: US (occurrence: None)
  Receive Date: 20240906
  Receipt Date: 20240906
  Transmission Date: 20241016
  Serious: No
  Sender: DOMPE FARMACEUTICI
  Company Number: US-FARMAPROD-202403-1127

PATIENT
  Sex: Male
  Weight: 47.99 kg

DRUGS (11)
  1. OXERVATE [Suspect]
     Active Substance: CENEGERMIN-BKBJ
     Indication: Neurotrophic keratopathy
     Route: 047
     Dates: start: 20240319
  2. OXERVATE [Suspect]
     Active Substance: CENEGERMIN-BKBJ
  3. OXERVATE [Suspect]
     Active Substance: CENEGERMIN-BKBJ
  4. ALREX [Concomitant]
     Active Substance: LOTEPREDNOL ETABONATE
  5. RESTASIS [Concomitant]
     Active Substance: CYCLOSPORINE
  6. FAMOTIDINE [Concomitant]
     Active Substance: FAMOTIDINE
  7. MONTELUKAST SODIUM [Concomitant]
     Active Substance: MONTELUKAST\MONTELUKAST SODIUM
  8. ERYTHROMYCIN [Concomitant]
     Active Substance: ERYTHROMYCIN
  9. SHINGRIX [Concomitant]
     Active Substance: RECOMBINANT VARICELLA ZOSTER VIRUS (VZV) GLYCOPROTEIN E
     Dosage: 50 MICROGRAMS/0.05 KIT
  10. XIIDRA [Concomitant]
     Active Substance: LIFITEGRAST
  11. ROSUVASTATIN CALCIUM [Concomitant]
     Active Substance: ROSUVASTATIN CALCIUM

REACTIONS (12)
  - Eye pain [Unknown]
  - Eye swelling [Unknown]
  - Ocular discomfort [Unknown]
  - Periorbital pain [Unknown]
  - Periorbital swelling [Unknown]
  - Eye irritation [Unknown]
  - Headache [Not Recovered/Not Resolved]
  - Nasal discomfort [Unknown]
  - Eye irritation [Not Recovered/Not Resolved]
  - Hypertension [Unknown]
  - Oropharyngeal pain [Unknown]
  - Fatigue [Unknown]
